FAERS Safety Report 6196445-2 (Version None)
Quarter: 2009Q2

REPORT INFORMATION
  Report Type: 
  Country: None (occurrence: None)
  Receive Date: 20090520
  Receipt Date: 20090513
  Transmission Date: 20091009
  Serious: Yes (Other)
  Sender: FDA-Public Use
  Company Number: BE-NOVOPROD-287226

PATIENT
  Age: 16 Year
  Sex: Female

DRUGS (3)
  1. LEVEMIR [Suspect]
     Indication: TYPE 1 DIABETES MELLITUS
     Dosage: UNKNOWN
     Dates: start: 20070801, end: 20081201
  2. NOVORAPID [Suspect]
     Dates: start: 20070801
  3. LANTUS [Concomitant]

REACTIONS (1)
  - HEPATIC ENZYME INCREASED [None]
